FAERS Safety Report 9333330 (Version 1)
Quarter: 2013Q2

REPORT INFORMATION
  Report Type: Spontaneous
  Country: GB (occurrence: None)
  Receive Date: 20130604
  Receipt Date: 20130604
  Transmission Date: 20140414
  Serious: Yes (Hospitalization)
  Sender: FDA-Public Use
  Company Number: AUR-APL-2013-04349

PATIENT
  Sex: Male

DRUGS (3)
  1. CIPROFLOXACIN (CIPROFLOXACIN) [Suspect]
  2. LEVOFLOXACIN (LEVOFLOXACIN) [Suspect]
  3. PHYLLOCONTIN CONTINUS [Suspect]
     Dosage: 2 TABLETS OF 225MG IN AFTERNOON AND 1 TAB. OF 225MG IN MORNING

REACTIONS (2)
  - Headache [None]
  - Drug interaction [None]
